FAERS Safety Report 12070555 (Version 1)
Quarter: 2016Q1

REPORT INFORMATION
  Report Type: Report from Study
  Country: JP (occurrence: JP)
  Receive Date: 20160211
  Receipt Date: 20160211
  Transmission Date: 20160526
  Serious: Yes (Other)
  Sender: FDA-Public Use
  Company Number: JP-009507513-1602JPN005945

PATIENT

DRUGS (3)
  1. DEXAMETHASONE. [Suspect]
     Active Substance: DEXAMETHASONE
     Indication: AMYLOIDOSIS
     Dosage: 20 MG/M2, QD ON DAYS 1,2,4,5,8,9,11 AND 12.
     Route: 065
  2. MELPHALAN [Suspect]
     Active Substance: MELPHALAN
     Indication: AMYLOIDOSIS
     Dosage: 8 MG/M2, CYCLICAL ON DAYS 1-4
     Route: 065
  3. BORTEZOMIB [Suspect]
     Active Substance: BORTEZOMIB
     Indication: AMYLOIDOSIS
     Dosage: TWICE WEEKLY SCHEDULE, (DAYS 1,4,8 AND 11 OF 28 DAY TREATMENT CYCLES).
     Route: 065

REACTIONS (5)
  - Off label use [Unknown]
  - Leukopenia [Unknown]
  - Thrombocytopenia [Unknown]
  - Rash [Unknown]
  - Neuropathy peripheral [Unknown]
